FAERS Safety Report 16950960 (Version 3)
Quarter: 2021Q4

REPORT INFORMATION
  Report Type: Spontaneous
  Country: KR (occurrence: KR)
  Receive Date: 20191023
  Receipt Date: 20211015
  Transmission Date: 20220304
  Serious: Yes (Death, Other)
  Sender: FDA-Public Use
  Company Number: KR-AMGEN-KORSP2019171882

PATIENT
  Age: 60 Year
  Sex: Female

DRUGS (6)
  1. BLINATUMOMAB [Suspect]
     Active Substance: BLINATUMOMAB
     Indication: B precursor type acute leukaemia
     Dosage: UNK, CYCLICAL
     Route: 065
  2. BUSULFEX [Suspect]
     Active Substance: BUSULFAN
     Indication: Product used for unknown indication
     Dosage: 9.6 MG/KG IN TOTAL
     Route: 065
  3. FLUDARABINE [Concomitant]
     Active Substance: FLUDARABINE PHOSPHATE
     Indication: B precursor type acute leukaemia
     Dosage: 30 MILLIGRAM/SQ. METER, QD (FOR 5 DAYS)
  4. MELPHALAN [Concomitant]
     Active Substance: MELPHALAN
     Indication: B precursor type acute leukaemia
     Dosage: 70 MILLIGRAM/SQ. METER, QD (FOR 2 DAYS)
  5. DEXAMETHASONE [Concomitant]
     Active Substance: DEXAMETHASONE
     Indication: B precursor type acute leukaemia
     Dosage: 10 MILLIGRAM, Q12H
  6. BUSULFAN [Concomitant]
     Active Substance: BUSULFAN
     Indication: B precursor type acute leukaemia
     Dosage: 3.2 MILLIGRAM/KILOGRAM, QD (FOR 3 DAYS)

REACTIONS (4)
  - Venoocclusive disease [Fatal]
  - Organ failure [Fatal]
  - Acute lymphocytic leukaemia recurrent [Fatal]
  - Pneumococcal sepsis [Fatal]
